FAERS Safety Report 4552020-4 (Version None)
Quarter: 2005Q1

REPORT INFORMATION
  Report Type: 
  Country: None (occurrence: None)
  Receive Date: 20050112
  Receipt Date: 20050112
  Transmission Date: 20050727
  Serious: Yes (Death, Hospitalization)
  Sender: FDA-Public Use
  Company Number: 2004-BP-12289BP

PATIENT
  Age: 34 Year
  Sex: Male

DRUGS (3)
  1. VIRAMUNE [Suspect]
  2. STAVUDINE (STAVUDINE) [Suspect]
     Indication: HIV INFECTION
     Dosage: 30MG/2/DAY
     Route: 048
     Dates: start: 20040923, end: 20041017
  3. BACTRIM [Concomitant]

REACTIONS (6)
  - DIARRHOEA [None]
  - HEPATITIS B [None]
  - HEPATOTOXICITY [None]
  - HILAR LYMPHADENOPATHY [None]
  - ORAL CANDIDIASIS [None]
  - PULMONARY TUBERCULOSIS [None]
